FAERS Safety Report 11223269 (Version 1)
Quarter: 2015Q2

REPORT INFORMATION
  Report Type: Spontaneous
  Country: US (occurrence: US)
  Receive Date: 20150626
  Receipt Date: 20150626
  Transmission Date: 20150821
  Serious: No
  Sender: FDA-Public Use
  Company Number: US-BIOMARINAP-US-2015-106723

PATIENT
  Sex: Female

DRUGS (1)
  1. KUVAN [Suspect]
     Active Substance: SAPROPTERIN DIHYDROCHLORIDE
     Indication: PHENYLKETONURIA
     Dosage: 1200 MG, QD
     Route: 048

REACTIONS (6)
  - Menstruation irregular [Unknown]
  - Hypothyroidism [Unknown]
  - Cognitive disorder [Unknown]
  - Mood swings [Unknown]
  - Migraine [Unknown]
  - Exposure during pregnancy [Unknown]
